FAERS Safety Report 12853271 (Version 1)
Quarter: 2016Q4

REPORT INFORMATION
  Report Type: Spontaneous
  Country: CN (occurrence: CN)
  Receive Date: 20161017
  Receipt Date: 20161017
  Transmission Date: 20170207
  Serious: Yes (Death, Life-Threatening, Other)
  Sender: FDA-Public Use
  Company Number: CN-CORDEN PHARMA LATINA S.P.A.-CN-2016COR000222

PATIENT
  Age: 56 Year
  Sex: Male

DRUGS (6)
  1. ETOPOSIDE. [Suspect]
     Active Substance: ETOPOSIDE
     Indication: SMALL CELL LUNG CANCER
     Dosage: UNK,  (3 CYCLES)
     Route: 065
     Dates: start: 201409
  2. LAMIVUDINE. [Suspect]
     Active Substance: LAMIVUDINE
     Indication: PROPHYLAXIS
     Dosage: 100 MG, QD (INITIATED 1 WEEK PRIOR TO CHEMOTHERAPY)
     Route: 065
     Dates: start: 201409
  3. CISPLATIN. [Suspect]
     Active Substance: CISPLATIN
     Dosage: UNK (2 CYCLES)
     Route: 065
     Dates: start: 201502
  4. CISPLATIN. [Suspect]
     Active Substance: CISPLATIN
     Indication: SMALL CELL LUNG CANCER
     Dosage: UNK (1 CYCLE)
     Route: 065
     Dates: start: 201409
  5. ETOPOSIDE. [Suspect]
     Active Substance: ETOPOSIDE
     Dosage: UNK (2 CYCLES)
     Route: 065
     Dates: start: 201502
  6. CARBOPLATIN. [Suspect]
     Active Substance: CARBOPLATIN
     Indication: SMALL CELL LUNG CANCER
     Dosage: UNK, (3 CYCLES)
     Route: 065
     Dates: start: 201409

REACTIONS (11)
  - Hepatorenal syndrome [Fatal]
  - Enzyme abnormality [Fatal]
  - Hepatic encephalopathy [Fatal]
  - Haemoptysis [Unknown]
  - Bone marrow failure [Unknown]
  - Hepatitis B [Fatal]
  - Acute hepatitis B [Fatal]
  - Neoplasm progression [Unknown]
  - Hyperammonaemia [Fatal]
  - Hypoalbuminaemia [Fatal]
  - Pancreatitis acute [Unknown]
